FAERS Safety Report 14958588 (Version 3)
Quarter: 2020Q2

REPORT INFORMATION
  Report Type: Spontaneous
  Country: US (occurrence: US)
  Receive Date: 20180531
  Receipt Date: 20200522
  Transmission Date: 20200713
  Serious: Yes (Death, Hospitalization, Other)
  Sender: FDA-Public Use
  Company Number: US-009507513-1805USA014843

PATIENT
  Sex: Female
  Weight: 70.75 kg

DRUGS (4)
  1. JANUVIA [Suspect]
     Active Substance: SITAGLIPTIN PHOSPHATE
     Indication: TYPE 2 DIABETES MELLITUS
     Dosage: 100 MILLIGRAM, ONCE DAILY
     Route: 048
     Dates: start: 200904
  2. VICTOZA [Suspect]
     Active Substance: LIRAGLUTIDE
     Indication: TYPE 2 DIABETES MELLITUS
     Dosage: 0.6 MILLIGRAM, TWICE DAILY
     Route: 065
     Dates: start: 20130830, end: 201312
  3. JANUVIA [Suspect]
     Active Substance: SITAGLIPTIN PHOSPHATE
     Dosage: 25 MILLIGRAM, ONCE DAILY
     Route: 048
     Dates: end: 201304
  4. VICTOZA [Suspect]
     Active Substance: LIRAGLUTIDE
     Dosage: 1.2 MILLIGRAM, ONCE DAILY
     Dates: start: 201312, end: 201404

REACTIONS (4)
  - Pancreatitis [Unknown]
  - Constipation [Unknown]
  - Pancreatic carcinoma [Fatal]
  - Diverticulum [Unknown]

NARRATIVE: CASE EVENT DATE: 20160814
